FAERS Safety Report 4828102-6 (Version None)
Quarter: 2005Q4

REPORT INFORMATION
  Report Type: 
  Country: None (occurrence: None)
  Receive Date: 20051110
  Receipt Date: 20051028
  Transmission Date: 20060501
  Serious: Yes (Hospitalization, Other)
  Sender: FDA-Public Use
  Company Number: 2005149559

PATIENT
  Age: 77 Year
  Sex: Male

DRUGS (2)
  1. VFEND [Suspect]
     Indication: MYELITIS
     Dosage: 6 MG/KG, INTRAVENOUS
     Route: 042
     Dates: start: 20050930, end: 20051017
  2. MEROPEN (MEROPENEM) [Concomitant]

REACTIONS (5)
  - AMMONIA INCREASED [None]
  - DEPRESSED LEVEL OF CONSCIOUSNESS [None]
  - GLOSSOPTOSIS [None]
  - HALLUCINATION [None]
  - SOMNOLENCE [None]
